FAERS Safety Report 7155834-X (Version None)
Quarter: 2010Q4

REPORT INFORMATION
  Report Type: 
  Country: None (occurrence: None)
  Receive Date: 20101123
  Receipt Date: 20100826
  Transmission Date: 20110411
  Serious: No
  Sender: FDA-Public Use
  Company Number: 010090

PATIENT
  Sex: Female

DRUGS (2)
  1. CIMZIA [Suspect]
     Indication: CROHN'S DISEASE
     Dosage: (SUBCUTANEOUS), (200 MG 1X/2 WEEKS SUBCUTANEOUS)
     Route: 058
     Dates: start: 20090129
  2. CIMZIA [Suspect]

REACTIONS (4)
  - ALLERGIC SINUSITIS [None]
  - ARTHRALGIA [None]
  - SKIN IRRITATION [None]
  - STRESS [None]
